FAERS Safety Report 13615083 (Version 8)
Quarter: 2017Q3

REPORT INFORMATION
  Report Type: Spontaneous
  Country: US (occurrence: US)
  Receive Date: 20170606
  Receipt Date: 20170816
  Transmission Date: 20171127
  Serious: Yes (Hospitalization, Other)
  Sender: FDA-Public Use
  Company Number: US-GLAXOSMITHKLINE-US2017GSK085861

PATIENT
  Age: 57 Year
  Sex: Female

DRUGS (10)
  1. VENTOLIN HFA [Suspect]
     Active Substance: ALBUTEROL SULFATE
     Indication: PRODUCT USED FOR UNKNOWN INDICATION
     Dosage: 2 PUFF(S), PRN
     Route: 055
  2. INTAL [Suspect]
     Active Substance: CROMOLYN SODIUM
     Indication: PRODUCT USED FOR UNKNOWN INDICATION
  3. AMOXICILLIN. [Concomitant]
     Active Substance: AMOXICILLIN
  4. INCRUSE ELLIPTA [Suspect]
     Active Substance: UMECLIDINIUM BROMIDE
     Indication: ASTHMA
     Dosage: 1 PUFF(S), QD
     Dates: start: 20170525, end: 20170526
  5. PREDNISONE. [Concomitant]
     Active Substance: PREDNISONE
  6. BREO ELLIPTA [Suspect]
     Active Substance: FLUTICASONE FUROATE\VILANTEROL TRIFENATATE
     Indication: ASTHMA
     Dosage: 1 PUFF(S), QD
     Route: 055
     Dates: start: 20170525, end: 20170527
  7. FLUTICASONE. [Concomitant]
     Active Substance: FLUTICASONE
     Dosage: 1 PUFF(S), QD
  8. DUONEB [Suspect]
     Active Substance: ALBUTEROL SULFATE\IPRATROPIUM BROMIDE
     Indication: PRODUCT USED FOR UNKNOWN INDICATION
     Dosage: UNK, PRN
     Route: 055
  9. BREO ELLIPTA [Suspect]
     Active Substance: FLUTICASONE FUROATE\VILANTEROL TRIFENATATE
     Indication: CHRONIC OBSTRUCTIVE PULMONARY DISEASE
  10. SINUS RINSE [Concomitant]
     Active Substance: SODIUM BICARBONATE\SODIUM CHLORIDE

REACTIONS (31)
  - Sputum increased [Unknown]
  - Vomiting [Unknown]
  - Cough [Unknown]
  - Fatigue [Unknown]
  - Asthenia [Unknown]
  - Pruritus [Unknown]
  - Headache [Unknown]
  - Dyspnoea [Unknown]
  - Adverse drug reaction [Unknown]
  - Hospitalisation [Unknown]
  - White blood cell count increased [Unknown]
  - Tremor [Unknown]
  - Ill-defined disorder [Unknown]
  - Chronic obstructive pulmonary disease [Recovering/Resolving]
  - Stomatitis [Unknown]
  - Pharyngeal paraesthesia [Unknown]
  - Throat tightness [Unknown]
  - Urticaria [Unknown]
  - Chest discomfort [Recovering/Resolving]
  - Pneumonia bacterial [Unknown]
  - Nausea [Unknown]
  - Asthma [Recovering/Resolving]
  - Feeling abnormal [Unknown]
  - Drug hypersensitivity [Unknown]
  - Oropharyngeal pain [Not Recovered/Not Resolved]
  - Obesity [Unknown]
  - Bronchitis [Unknown]
  - Sputum discoloured [Unknown]
  - Nervousness [Unknown]
  - Sinus pain [Unknown]
  - Dysphonia [Not Recovered/Not Resolved]

NARRATIVE: CASE EVENT DATE: 20170526
